FAERS Safety Report 4550890-7 (Version None)
Quarter: 2004Q4

REPORT INFORMATION
  Report Type: 
  Country: None (occurrence: None)
  Receive Date: 20041217
  Receipt Date: 20040910
  Transmission Date: 20050328
  Serious: No
  Sender: FDA-Public Use
  Company Number: 2004-BP-08220BP

PATIENT
  Age: 81 Year
  Sex: Female
  Weight: 68 kg

DRUGS (7)
  1. SPIRIVA [Suspect]
     Indication: CHRONIC OBSTRUCTIVE AIRWAYS DISEASE
     Dosage: 18 MCG (18 MCG), IH
     Route: 055
     Dates: start: 20040908, end: 20040920
  2. PULMICORT [Concomitant]
  3. ALBUTEROL [Concomitant]
  4. CARDIZEM [Concomitant]
  5. SYNTHROID [Concomitant]
  6. ACETYLSALICYLIC ACID SRT [Concomitant]
  7. LORAZEPAM [Concomitant]

REACTIONS (1)
  - WHEEZING [None]
